FAERS Safety Report 13105896 (Version 1)
Quarter: 2017Q1

REPORT INFORMATION
  Report Type: Report from Study
  Country: IL (occurrence: IL)
  Receive Date: 20170111
  Receipt Date: 20170111
  Transmission Date: 20170428
  Serious: Yes (Hospitalization, Other)
  Sender: FDA-Public Use
  Company Number: IL-IPSEN BIOPHARMACEUTICALS, INC.-2017-00096

PATIENT
  Age: 62 Year
  Sex: Female
  Weight: 87 kg

DRUGS (7)
  1. SOMATULINE AUTOGEL 120MG [Suspect]
     Active Substance: LANREOTIDE ACETATE
     Indication: NEUROENDOCRINE TUMOUR OF THE LUNG
     Dosage: 120 MG
     Route: 065
     Dates: start: 200902
  2. NOVONORM [Concomitant]
     Active Substance: REPAGLINIDE
  3. FLUTIFORM [Concomitant]
     Active Substance: FLUTICASONE PROPIONATE\FORMOTEROL FUMARATE
  4. SOMATULINE AUTOGEL 120MG [Suspect]
     Active Substance: LANREOTIDE ACETATE
     Indication: OFF LABEL USE
  5. VITAMIN D [Concomitant]
     Active Substance: CHOLECALCIFEROL
  6. GLUCOMIN [Concomitant]
     Active Substance: METFORMIN HYDROCHLORIDE
  7. JANUVIA [Concomitant]
     Active Substance: SITAGLIPTIN PHOSPHATE

REACTIONS (18)
  - Asthma [Recovering/Resolving]
  - Blood glucose increased [Unknown]
  - Weight increased [Unknown]
  - Fatigue [Unknown]
  - Vitamin D decreased [Unknown]
  - Osteosclerosis [Unknown]
  - Blood immunoglobulin E increased [Unknown]
  - Abdominal distension [Unknown]
  - Dyspnoea [Unknown]
  - Lower respiratory tract infection [Recovering/Resolving]
  - Spinal pain [Unknown]
  - Pain in extremity [Recovered/Resolved]
  - Malaise [Unknown]
  - Glycosylated haemoglobin increased [Unknown]
  - Abdominal pain [Unknown]
  - Condition aggravated [Unknown]
  - Asthenia [Unknown]
  - Off label use [Unknown]

NARRATIVE: CASE EVENT DATE: 2014
